FAERS Safety Report 22121546 (Version 3)
Quarter: 2023Q2

REPORT INFORMATION
  Report Type: Report from Study
  Country: US (occurrence: US)
  Receive Date: 20230321
  Receipt Date: 20230610
  Transmission Date: 20230722
  Serious: No
  Sender: FDA-Public Use
  Company Number: US-002147023-NVSC2023US065004

PATIENT
  Age: 71 Year
  Sex: Female

DRUGS (1)
  1. LEQVIO [Suspect]
     Active Substance: INCLISIRAN SODIUM
     Indication: Product used for unknown indication
     Dosage: 284 MG, EVERY SIX MONTHS
     Route: 058
     Dates: start: 20230314

REACTIONS (2)
  - Oral discomfort [Unknown]
  - Product label issue [Unknown]

NARRATIVE: CASE EVENT DATE: 20230314
